FAERS Safety Report 10462896 (Version 2)
Quarter: 2014Q4

REPORT INFORMATION
  Report Type: Spontaneous
  Country: US (occurrence: US)
  Receive Date: 20140918
  Receipt Date: 20141231
  Transmission Date: 20150528
  Serious: Yes (Other)
  Sender: FDA-Public Use
  Company Number: US-GILEAD-2014-0115586

PATIENT
  Age: 68 Year
  Sex: Male

DRUGS (3)
  1. LETAIRIS [Suspect]
     Active Substance: AMBRISENTAN
     Indication: PULMONARY HYPERTENSION
     Dosage: 5 MG, QD
     Route: 065
     Dates: start: 20120201
  2. VELETRI [Concomitant]
     Active Substance: EPOPROSTENOL
  3. LETAIRIS [Suspect]
     Active Substance: AMBRISENTAN
     Indication: CARCINOID HEART DISEASE

REACTIONS (3)
  - Pericardial effusion [Unknown]
  - Walking distance test abnormal [Unknown]
  - Weight decreased [Unknown]
